FAERS Safety Report 19568940 (Version 2)
Quarter: 2022Q2

REPORT INFORMATION
  Report Type: Report from Study
  Country: US (occurrence: US)
  Receive Date: 20210716
  Receipt Date: 20220407
  Transmission Date: 20220721
  Serious: Yes (Other)
  Sender: FDA-Public Use
  Company Number: US-ABBVIE-21K-163-3985079-00

PATIENT
  Sex: Female

DRUGS (2)
  1. IMBRUVICA [Suspect]
     Active Substance: IBRUTINIB
     Indication: Chronic lymphocytic leukaemia
     Route: 048
     Dates: start: 20180907
  2. IMBRUVICA [Suspect]
     Active Substance: IBRUTINIB
     Indication: Lymphocytic leukaemia

REACTIONS (7)
  - Loss of consciousness [Unknown]
  - Pain [Recovering/Resolving]
  - Bone disorder [Unknown]
  - Mass [Unknown]
  - Arthropathy [Unknown]
  - Bone swelling [Unknown]
  - Fall [Unknown]
